FAERS Safety Report 5865071-4 (Version None)
Quarter: 2008Q3

REPORT INFORMATION
  Report Type: 
  Country: None (occurrence: None)
  Receive Date: 20080829
  Receipt Date: 20080822
  Transmission Date: 20090109
  Serious: Yes (Hospitalization)
  Sender: FDA-Public Use
  Company Number: A0730982A

PATIENT
  Age: 52 Year
  Sex: Female
  Weight: 107.3 kg

DRUGS (6)
  1. AVANDIA [Suspect]
     Dosage: 4MG TWICE PER DAY
     Route: 048
     Dates: start: 20000201, end: 20031201
  2. AVANDIA [Suspect]
     Dosage: 8MG PER DAY
     Route: 048
     Dates: start: 20031201, end: 20051201
  3. ACTOS [Concomitant]
     Dates: start: 20020101, end: 20070101
  4. REZULIN [Concomitant]
     Dates: start: 19990101, end: 20010101
  5. GLUCOPHAGE [Concomitant]
     Dates: start: 20000101, end: 20010101
  6. METFORMIN HCL [Concomitant]
     Dates: start: 20000101, end: 20030101

REACTIONS (6)
  - ADVERSE EVENT [None]
  - CARDIAC FAILURE CONGESTIVE [None]
  - CEREBROVASCULAR ACCIDENT [None]
  - INJURY [None]
  - PAIN [None]
  - TRANSIENT ISCHAEMIC ATTACK [None]
